FAERS Safety Report 7155334-7 (Version None)
Quarter: 2010Q4

REPORT INFORMATION
  Report Type: 
  Country: None (occurrence: None)
  Receive Date: 20101214
  Receipt Date: 20101203
  Transmission Date: 20110411
  Serious: Yes (Hospitalization)
  Sender: FDA-Public Use
  Company Number: SE-BIOGENIDEC-2010BI042237

PATIENT
  Age: 42 Year
  Sex: Female

DRUGS (2)
  1. TYSABRI [Suspect]
     Indication: MULTIPLE SCLEROSIS
     Route: 042
     Dates: start: 20091215, end: 20100901
  2. DETRUSITOL [Concomitant]
     Route: 048

REACTIONS (3)
  - CEREBROVASCULAR DISORDER [None]
  - DEPRESSION [None]
  - VASCULITIS [None]
